FAERS Safety Report 19247359 (Version 3)
Quarter: 2021Q2

REPORT INFORMATION
  Report Type: Report from Study
  Country: CA (occurrence: CA)
  Receive Date: 20210512
  Receipt Date: 20210615
  Transmission Date: 20210717
  Serious: Yes (Other)
  Sender: FDA-Public Use
  Company Number: CA-JNJFOC-20210518634

PATIENT
  Age: 71 Year
  Sex: Male
  Weight: 118.2 kg

DRUGS (2)
  1. REMICADE [Suspect]
     Active Substance: INFLIXIMAB
     Indication: COLITIS ULCERATIVE
     Route: 042
     Dates: start: 20141217
  2. REMICADE [Suspect]
     Active Substance: INFLIXIMAB
     Route: 042
     Dates: start: 20171214, end: 20210609

REACTIONS (2)
  - Lung neoplasm [Unknown]
  - Weight decreased [Unknown]

NARRATIVE: CASE EVENT DATE: 20210420
